FAERS Safety Report 4702602-1 (Version None)
Quarter: 2005Q2

REPORT INFORMATION
  Report Type: 
  Country: None (occurrence: None)
  Receive Date: 20050629
  Receipt Date: 20010914
  Transmission Date: 20051028
  Serious: Yes (Hospitalization)
  Sender: FDA-Public Use
  Company Number: 10990463

PATIENT
  Age: 1 Day
  Sex: Male
  Weight: 3 kg

DRUGS (11)
  1. ZERIT [Suspect]
     Dosage: THERAPY STOPPED AT WEEK 28 OF GESTATION
     Route: 064
     Dates: end: 20000824
  2. VIDEX [Suspect]
     Dosage: ONGOING FROM WEEK 28 OF GESTATION
     Route: 064
     Dates: start: 20000824
  3. VIRACEPT [Suspect]
     Dosage: ONGOING FROM WEEK 28 OF GESTATION
     Route: 064
     Dates: start: 20000824
  4. EPIVIR [Suspect]
     Dosage: THERAPY STOPPED AT WEEK 28 OF GESTATION
     Route: 064
     Dates: start: 20000824
  5. RETROVIR [Suspect]
     Dosage: ONGOING FROM WEEK 28 OF GESTATION, THEN VIA INTRAVENOUS DRIP ON 11/7/00
     Route: 064
  6. RETROVIR [Suspect]
     Dosage: 100 MG/10 ML
     Route: 048
     Dates: start: 20001107, end: 20001211
  7. AGENERASE [Suspect]
     Dosage: THERAPY STOPPED AT WEEK 5 OF GESTATION
     Route: 064
     Dates: end: 20000322
  8. AUGMENTIN [Concomitant]
     Route: 064
  9. CORTANCYL [Concomitant]
     Route: 064
  10. CODOLIPRANE [Concomitant]
     Route: 064
  11. LAROXYL [Concomitant]
     Route: 064

REACTIONS (9)
  - ANAEMIA [None]
  - BLOOD CREATININE INCREASED [None]
  - FOETAL DISTRESS SYNDROME [None]
  - HYPERTRIGLYCERIDAEMIA [None]
  - MACROCYTOSIS [None]
  - NEUTROPENIA [None]
  - PLATELET COUNT INCREASED [None]
  - PREGNANCY [None]
  - SKULL MALFORMATION [None]
